FAERS Safety Report 5927781-X (Version None)
Quarter: 2008Q4

REPORT INFORMATION
  Report Type: 
  Country: None (occurrence: None)
  Receive Date: 20081021
  Receipt Date: 20071009
  Transmission Date: 20090506
  Serious: Yes (Other)
  Sender: FDA-Public Use
  Company Number: OSCN-PR-0705S-0240

PATIENT
  Age: 54 Year
  Sex: Male

DRUGS (1)
  1. OMNISCAN [Suspect]
     Indication: DRUG USE FOR UNKNOWN INDICATION
     Dosage: THRE ADMINISTRATIONS TOTALING MORE THAN 60ML, I.V.
     Route: 042

REACTIONS (2)
  - DIALYSIS [None]
  - NEPHROGENIC SYSTEMIC FIBROSIS [None]
